FAERS Safety Report 4862306-1 (Version None)
Quarter: 2005Q4

REPORT INFORMATION
  Report Type: 
  Country: None (occurrence: None)
  Receive Date: 20051221
  Receipt Date: 20050708
  Transmission Date: 20060501
  Serious: Yes (Hospitalization)
  Sender: FDA-Public Use
  Company Number: 200511993JP

PATIENT
  Age: 66 Year
  Sex: Female
  Weight: 63 kg

DRUGS (15)
  1. ARAVA [Suspect]
     Indication: RHEUMATOID ARTHRITIS
     Route: 048
     Dates: start: 20031004, end: 20031006
  2. ARAVA [Suspect]
     Route: 048
     Dates: start: 20031007, end: 20031113
  3. NEUER [Concomitant]
     Indication: GASTRITIS
     Route: 048
  4. NEUER [Concomitant]
     Indication: PROPHYLAXIS
     Route: 048
  5. ACTONEL [Concomitant]
     Indication: OSTEOPOROSIS
     Route: 048
  6. CLINORIL [Concomitant]
     Indication: RHEUMATOID ARTHRITIS
     Route: 048
  7. GLAKAY [Concomitant]
     Indication: OSTEOPOROSIS
     Route: 048
  8. HYPEN [Concomitant]
     Indication: RHEUMATOID ARTHRITIS
     Route: 048
  9. GASTER [Concomitant]
     Indication: GASTRITIS
     Route: 048
  10. GASTER [Concomitant]
     Indication: PROPHYLAXIS
     Route: 048
  11. THIOLA [Concomitant]
     Indication: RHEUMATOID ARTHRITIS
     Dates: end: 20031002
  12. ROCALTROL [Concomitant]
     Indication: OSTEOPOROSIS
     Route: 048
  13. METALCAPTASE [Concomitant]
     Indication: RHEUMATOID ARTHRITIS
     Route: 048
     Dates: end: 20031002
  14. PREDONINE [Concomitant]
     Indication: RHEUMATOID ARTHRITIS
     Route: 048
  15. KETOPROFEN [Concomitant]
     Indication: RHEUMATOID ARTHRITIS
     Route: 062

REACTIONS (2)
  - CHOLECYSTITIS [None]
  - JAUNDICE [None]
